FAERS Safety Report 5739272-X (Version None)
Quarter: 2008Q2

REPORT INFORMATION
  Report Type: 
  Country: None (occurrence: None)
  Receive Date: 20080515
  Receipt Date: 20080507
  Transmission Date: 20081010
  Serious: Yes (Other)
  Sender: FDA-Public Use
  Company Number: NO-ASTRAZENECA-2008SE02309

PATIENT
  Sex: Female

DRUGS (1)
  1. MERONEM [Suspect]
     Route: 042

REACTIONS (1)
  - CONVULSION [None]
